FAERS Safety Report 9775470 (Version 2)
Quarter: 2014Q1

REPORT INFORMATION
  Report Type: Spontaneous
  Country: US (occurrence: US)
  Receive Date: 20131220
  Receipt Date: 20140318
  Transmission Date: 20141002
  Serious: No
  Sender: FDA-Public Use
  Company Number: US-GALDERMA-US13003490

PATIENT
  Age: 41 Year
  Sex: Female
  Weight: 49.9 kg

DRUGS (10)
  1. MIRVASO (BRIMONIDINE) TOPICAL GEL, 0.33% [Suspect]
     Indication: ROSACEA
     Dosage: 0.33%
     Route: 061
     Dates: start: 20131020, end: 20131021
  2. INFLIXIMAB [Concomitant]
     Dosage: 10 MG/KG
     Dates: start: 2007
  3. METHOTREXATE [Concomitant]
  4. FOLIC ACID [Concomitant]
  5. VENLAFAXINE [Concomitant]
  6. ZOLPIDEM [Concomitant]
  7. CLONAZEPAM [Concomitant]
  8. TRAZODONE [Concomitant]
  9. CLOBETASOL OINTMENT [Concomitant]
     Dosage: 0.05%
     Route: 061
  10. XANAX [Concomitant]
     Dosage: 0.25 MG
     Route: 048

REACTIONS (7)
  - Rebound effect [Recovered/Resolved]
  - Feeling hot [Recovered/Resolved]
  - Pruritus [Recovered/Resolved]
  - Skin irritation [Recovered/Resolved]
  - Erythema [Recovered/Resolved]
  - Skin burning sensation [Recovered/Resolved]
  - Pain of skin [Recovered/Resolved]
